FAERS Safety Report 5115570-8 (Version None)
Quarter: 2006Q3

REPORT INFORMATION
  Report Type: 
  Country: None (occurrence: None)
  Receive Date: 20060925
  Receipt Date: 20060912
  Transmission Date: 20061208
  Serious: Yes (Hospitalization)
  Sender: FDA-Public Use
  Company Number: 2006VX001342

PATIENT
  Age: 51 Year
  Sex: Female
  Weight: 64.4108 kg

DRUGS (8)
  1. DALMANE [Suspect]
     Indication: DRUG USE FOR UNKNOWN INDICATION
     Dates: start: 20060501, end: 20060501
  2. PALIPERIDONE PALMITATE [Concomitant]
  3. TRAZODONE HCL [Concomitant]
  4. LEXAPRO [Concomitant]
  5. ESTRADIOL INJ [Concomitant]
  6. ADVAIR DISKUS 100/50 [Concomitant]
  7. AZITHROMYCIN [Concomitant]
  8. IBUPROFEN [Concomitant]

REACTIONS (11)
  - ACUTE RESPIRATORY FAILURE [None]
  - ALCOHOL USE [None]
  - ATELECTASIS [None]
  - DRUG ABUSER [None]
  - DRUG SCREEN POSITIVE [None]
  - FATIGUE [None]
  - LETHARGY [None]
  - OVERDOSE [None]
  - PLATELET COUNT DECREASED [None]
  - PULMONARY CONGESTION [None]
  - WHITE BLOOD CELL COUNT DECREASED [None]
